FAERS Safety Report 25023542 (Version 1)
Quarter: 2025Q1

REPORT INFORMATION
  Report Type: Report from Study
  Country: DE (occurrence: DE)
  Receive Date: 20250228
  Receipt Date: 20250228
  Transmission Date: 20250409
  Serious: Yes (Hospitalization)
  Sender: MYLAN
  Company Number: DE-PFIZER INC-2005041991

PATIENT
  Age: 71 Year
  Sex: Female

DRUGS (72)
  1. ATORVASTATIN [Interacting]
     Active Substance: ATORVASTATIN
     Indication: Ill-defined disorder
     Dosage: 20 MILLIGRAM, QD
  2. ATORVASTATIN [Interacting]
     Active Substance: ATORVASTATIN
     Dosage: 20 MILLIGRAM, QD
     Route: 048
  3. ATORVASTATIN [Interacting]
     Active Substance: ATORVASTATIN
     Dosage: 20 MILLIGRAM, QD
     Route: 048
  4. ATORVASTATIN [Interacting]
     Active Substance: ATORVASTATIN
     Dosage: 20 MILLIGRAM, QD
  5. MIRTAZAPINE [Suspect]
     Active Substance: MIRTAZAPINE
     Indication: Ill-defined disorder
     Dates: start: 20040302, end: 20040510
  6. MIRTAZAPINE [Suspect]
     Active Substance: MIRTAZAPINE
     Dates: start: 20040302, end: 20040510
  7. MIRTAZAPINE [Suspect]
     Active Substance: MIRTAZAPINE
     Route: 048
     Dates: start: 20040302, end: 20040510
  8. MIRTAZAPINE [Suspect]
     Active Substance: MIRTAZAPINE
     Route: 048
     Dates: start: 20040302, end: 20040510
  9. MIRTAZAPINE [Suspect]
     Active Substance: MIRTAZAPINE
     Route: 048
  10. MIRTAZAPINE [Suspect]
     Active Substance: MIRTAZAPINE
     Route: 048
  11. MIRTAZAPINE [Suspect]
     Active Substance: MIRTAZAPINE
  12. MIRTAZAPINE [Suspect]
     Active Substance: MIRTAZAPINE
  13. MIRTAZAPINE [Suspect]
     Active Substance: MIRTAZAPINE
     Route: 048
     Dates: start: 20040302, end: 20040704
  14. MIRTAZAPINE [Suspect]
     Active Substance: MIRTAZAPINE
     Route: 048
     Dates: start: 20040302, end: 20040704
  15. MIRTAZAPINE [Suspect]
     Active Substance: MIRTAZAPINE
     Dates: start: 20040302, end: 20040704
  16. MIRTAZAPINE [Suspect]
     Active Substance: MIRTAZAPINE
     Dates: start: 20040302, end: 20040704
  17. MIRTAZAPINE [Suspect]
     Active Substance: MIRTAZAPINE
  18. MIRTAZAPINE [Suspect]
     Active Substance: MIRTAZAPINE
  19. MIRTAZAPINE [Suspect]
     Active Substance: MIRTAZAPINE
     Route: 048
  20. MIRTAZAPINE [Suspect]
     Active Substance: MIRTAZAPINE
     Route: 048
  21. REBOXETINE MESYLATE [Interacting]
     Active Substance: REBOXETINE MESYLATE
     Indication: Ill-defined disorder
  22. REBOXETINE MESYLATE [Interacting]
     Active Substance: REBOXETINE MESYLATE
  23. REBOXETINE MESYLATE [Interacting]
     Active Substance: REBOXETINE MESYLATE
     Route: 048
  24. REBOXETINE MESYLATE [Interacting]
     Active Substance: REBOXETINE MESYLATE
     Route: 048
  25. REBOXETINE MESYLATE [Interacting]
     Active Substance: REBOXETINE MESYLATE
     Route: 048
     Dates: start: 20040514, end: 20040618
  26. REBOXETINE MESYLATE [Interacting]
     Active Substance: REBOXETINE MESYLATE
     Route: 048
     Dates: start: 20040514, end: 20040618
  27. REBOXETINE MESYLATE [Interacting]
     Active Substance: REBOXETINE MESYLATE
     Dates: start: 20040514, end: 20040618
  28. REBOXETINE MESYLATE [Interacting]
     Active Substance: REBOXETINE MESYLATE
     Dates: start: 20040514, end: 20040618
  29. REBOXETINE MESYLATE [Interacting]
     Active Substance: REBOXETINE MESYLATE
     Route: 048
     Dates: start: 20040619, end: 20040621
  30. REBOXETINE MESYLATE [Interacting]
     Active Substance: REBOXETINE MESYLATE
     Dates: start: 20040619, end: 20040621
  31. REBOXETINE MESYLATE [Interacting]
     Active Substance: REBOXETINE MESYLATE
     Dates: start: 20040619, end: 20040621
  32. REBOXETINE MESYLATE [Interacting]
     Active Substance: REBOXETINE MESYLATE
     Route: 048
     Dates: start: 20040619, end: 20040621
  33. REBOXETINE MESYLATE [Interacting]
     Active Substance: REBOXETINE MESYLATE
     Dates: start: 20040622, end: 20040624
  34. REBOXETINE MESYLATE [Interacting]
     Active Substance: REBOXETINE MESYLATE
     Dates: start: 20040622, end: 20040624
  35. REBOXETINE MESYLATE [Interacting]
     Active Substance: REBOXETINE MESYLATE
     Route: 048
     Dates: start: 20040622, end: 20040624
  36. REBOXETINE MESYLATE [Interacting]
     Active Substance: REBOXETINE MESYLATE
     Route: 048
     Dates: start: 20040622, end: 20040624
  37. MELPERONE HYDROCHLORIDE [Interacting]
     Active Substance: MELPERONE HYDROCHLORIDE
     Indication: Ill-defined disorder
  38. MELPERONE HYDROCHLORIDE [Interacting]
     Active Substance: MELPERONE HYDROCHLORIDE
     Route: 048
  39. MELPERONE HYDROCHLORIDE [Interacting]
     Active Substance: MELPERONE HYDROCHLORIDE
     Route: 048
  40. MELPERONE HYDROCHLORIDE [Interacting]
     Active Substance: MELPERONE HYDROCHLORIDE
  41. HYDROCHLOROTHIAZIDE\IRBESARTAN [Interacting]
     Active Substance: HYDROCHLOROTHIAZIDE\IRBESARTAN
     Indication: Ill-defined disorder
  42. HYDROCHLOROTHIAZIDE\IRBESARTAN [Interacting]
     Active Substance: HYDROCHLOROTHIAZIDE\IRBESARTAN
     Route: 048
  43. HYDROCHLOROTHIAZIDE\IRBESARTAN [Interacting]
     Active Substance: HYDROCHLOROTHIAZIDE\IRBESARTAN
     Route: 048
  44. HYDROCHLOROTHIAZIDE\IRBESARTAN [Interacting]
     Active Substance: HYDROCHLOROTHIAZIDE\IRBESARTAN
  45. DIGITOXIN [Concomitant]
     Active Substance: DIGITOXIN
     Indication: Product used for unknown indication
     Dosage: 1 DOSAGE FORM, QD
  46. DIGITOXIN [Concomitant]
     Active Substance: DIGITOXIN
     Dosage: 1 DOSAGE FORM, QD
     Route: 048
  47. DIGITOXIN [Concomitant]
     Active Substance: DIGITOXIN
     Dosage: 1 DOSAGE FORM, QD
     Route: 048
  48. DIGITOXIN [Concomitant]
     Active Substance: DIGITOXIN
     Dosage: 1 DOSAGE FORM, QD
  49. BISOPROLOL FUMARATE [Concomitant]
     Active Substance: BISOPROLOL FUMARATE
     Indication: Product used for unknown indication
  50. BISOPROLOL FUMARATE [Concomitant]
     Active Substance: BISOPROLOL FUMARATE
     Route: 048
  51. BISOPROLOL FUMARATE [Concomitant]
     Active Substance: BISOPROLOL FUMARATE
     Route: 048
  52. BISOPROLOL FUMARATE [Concomitant]
     Active Substance: BISOPROLOL FUMARATE
  53. FUROSEMIDE [Concomitant]
     Active Substance: FUROSEMIDE
     Indication: Product used for unknown indication
  54. FUROSEMIDE [Concomitant]
     Active Substance: FUROSEMIDE
     Route: 048
  55. FUROSEMIDE [Concomitant]
     Active Substance: FUROSEMIDE
     Route: 048
  56. FUROSEMIDE [Concomitant]
     Active Substance: FUROSEMIDE
  57. Kalinor [Concomitant]
     Indication: Product used for unknown indication
     Dosage: 1 DOSAGE FORM, QD
  58. Kalinor [Concomitant]
     Dosage: 1 DOSAGE FORM, QD
     Route: 048
  59. Kalinor [Concomitant]
     Dosage: 1 DOSAGE FORM, QD
     Route: 048
  60. Kalinor [Concomitant]
     Dosage: 1 DOSAGE FORM, QD
  61. CALCIUM CARBONATE\CHOLECALCIFEROL [Concomitant]
     Active Substance: CALCIUM CARBONATE\CHOLECALCIFEROL
     Indication: Product used for unknown indication
     Dosage: 1 DOSAGE FORM, QD
  62. CALCIUM CARBONATE\CHOLECALCIFEROL [Concomitant]
     Active Substance: CALCIUM CARBONATE\CHOLECALCIFEROL
     Dosage: 1 DOSAGE FORM, QD
     Route: 048
  63. CALCIUM CARBONATE\CHOLECALCIFEROL [Concomitant]
     Active Substance: CALCIUM CARBONATE\CHOLECALCIFEROL
     Dosage: 1 DOSAGE FORM, QD
     Route: 048
  64. CALCIUM CARBONATE\CHOLECALCIFEROL [Concomitant]
     Active Substance: CALCIUM CARBONATE\CHOLECALCIFEROL
     Dosage: 1 DOSAGE FORM, QD
  65. ZOPICLONE [Concomitant]
     Active Substance: ZOPICLONE
     Indication: Product used for unknown indication
  66. ZOPICLONE [Concomitant]
     Active Substance: ZOPICLONE
     Route: 048
  67. ZOPICLONE [Concomitant]
     Active Substance: ZOPICLONE
     Route: 048
  68. ZOPICLONE [Concomitant]
     Active Substance: ZOPICLONE
  69. INSULIN HUMAN [Concomitant]
     Active Substance: INSULIN HUMAN
     Indication: Product used for unknown indication
  70. INSULIN HUMAN [Concomitant]
     Active Substance: INSULIN HUMAN
     Route: 058
  71. INSULIN HUMAN [Concomitant]
     Active Substance: INSULIN HUMAN
     Route: 058
  72. INSULIN HUMAN [Concomitant]
     Active Substance: INSULIN HUMAN

REACTIONS (3)
  - Generalised tonic-clonic seizure [Recovering/Resolving]
  - Drug interaction [Recovered/Resolved]
  - Focal dyscognitive seizures [Recovering/Resolving]

NARRATIVE: CASE EVENT DATE: 20040510
